FAERS Safety Report 6058073-9 (Version None)
Quarter: 2009Q1

REPORT INFORMATION
  Report Type: 
  Country: None (occurrence: None)
  Receive Date: 20090127
  Receipt Date: 20090115
  Transmission Date: 20090719
  Serious: Yes (Death, Life-Threatening, Hospitalization)
  Sender: FDA-Public Use
  Company Number: WAES 0901USA01906

PATIENT
  Age: 68 Year
  Sex: Male
  Weight: 98.8842 kg

DRUGS (9)
  1. DECADRON [Suspect]
     Dosage: 4 MG/BID/PO
     Route: 048
  2. TEMODAR [Suspect]
     Indication: GLIOBLASTOMA MULTIFORME
     Dosage: 200 MG/M[2]/DAILY/PO
     Route: 048
     Dates: start: 20070719, end: 20070723
  3. IRINOTECAN HYDROCHLORIDE  (INJ) [Suspect]
     Indication: GLIOBLASTOMA MULTIFORME
     Dosage: 125 MG/M[2]/1X/IV, 80 MG/M[2]/1X/IV
     Route: 042
     Dates: start: 20070719, end: 20070719
  4. IRINOTECAN HYDROCHLORIDE  (INJ) [Suspect]
     Indication: GLIOBLASTOMA MULTIFORME
     Dosage: 125 MG/M[2]/1X/IV, 80 MG/M[2]/1X/IV
     Route: 042
     Dates: start: 20070726, end: 20070726
  5. COUMADIN [Concomitant]
  6. LASIX [Concomitant]
  7. LIPITOR [Concomitant]
  8. LOTREL [Concomitant]
  9. TOPROL-XL [Concomitant]

REACTIONS (10)
  - ADRENAL INSUFFICIENCY [None]
  - ARRHYTHMIA SUPRAVENTRICULAR [None]
  - ATRIAL FIBRILLATION [None]
  - CLOSTRIDIAL INFECTION [None]
  - DEHYDRATION [None]
  - HYPERGLYCAEMIA [None]
  - HYPOTENSION [None]
  - PANCYTOPENIA [None]
  - RENAL FAILURE ACUTE [None]
  - SEPSIS [None]
